FAERS Safety Report 13384676 (Version 2)
Quarter: 2017Q2

REPORT INFORMATION
  Report Type: Other
  Country: US (occurrence: US)
  Receive Date: 20170329
  Receipt Date: 20170411
  Transmission Date: 20170830
  Serious: No
  Sender: FDA-Public Use
  Company Number: US-SHIRE-US201707092

PATIENT
  Age: 81 Year
  Sex: Female
  Weight: 68.27 kg

DRUGS (1)
  1. XIIDRA [Suspect]
     Active Substance: LIFITEGRAST
     Indication: DRY EYE
     Dosage: 1 GTT EACH EYE, 2X/DAY:BID
     Route: 047
     Dates: end: 20170326

REACTIONS (9)
  - Condition aggravated [Recovering/Resolving]
  - Instillation site reaction [Recovering/Resolving]
  - Glare [Recovered/Resolved]
  - Feeling abnormal [Not Recovered/Not Resolved]
  - Therapeutic response unexpected [Recovered/Resolved]
  - Eye irritation [Recovering/Resolving]
  - Instillation site pain [Recovering/Resolving]
  - Hypersensitivity [Unknown]
  - Vision blurred [Not Recovered/Not Resolved]

NARRATIVE: CASE EVENT DATE: 2017
